FAERS Safety Report 6954962-9 (Version None)
Quarter: 2010Q3

REPORT INFORMATION
  Report Type: 
  Country: None (occurrence: None)
  Receive Date: 20100830
  Receipt Date: 20100817
  Transmission Date: 20110219
  Serious: Yes (Other)
  Sender: FDA-Public Use
  Company Number: CO-TYCO HEALTHCARE/MALLINCKRODT-T201001821

PATIENT
  Age: 72 Year
  Sex: Female
  Weight: 58 kg

DRUGS (6)
  1. OPTIRAY 350 [Suspect]
     Indication: ANGIOGRAM
     Dosage: 100 ML, SINGLE
     Dates: start: 20100701, end: 20100701
  2. NIFEDIPINE [Concomitant]
     Dosage: 30 MG, UNK
     Route: 048
  3. LOVASTATIN [Concomitant]
     Dosage: 20 MG, UNK
     Route: 048
  4. SPIRONOLACTONE [Concomitant]
     Dosage: 25 MG, UNK
     Route: 048
  5. DALTEPARIN SODIUM [Concomitant]
     Dosage: 5000 UF, UNK
     Route: 058
  6. OMEPRAZOL                          /00661201/ [Concomitant]
     Dosage: 20 MG, UNK
     Route: 048

REACTIONS (3)
  - CHEST PAIN [None]
  - DYSPNOEA [None]
  - OXYGEN SATURATION DECREASED [None]
